FAERS Safety Report 8152495-8 (Version None)
Quarter: 2012Q1

REPORT INFORMATION
  Report Type: 
  Country: None (occurrence: None)
  Receive Date: 20120202
  Receipt Date: 20120123
  Transmission Date: 20120608
  Serious: Yes (Hospitalization)
  Sender: FDA-Public Use
  Company Number: 2012PROUSA00982

PATIENT
  Age: 67 Year
  Sex: Male

DRUGS (4)
  1. ASPIRIN [Concomitant]
  2. METFORMIN HCL [Concomitant]
  3. PROVENGE [Suspect]
     Indication: PROSTATE CANCER METASTATIC
     Dosage: 250 ML, SINGLE, INTRAVENOUS
     Route: 042
     Dates: start: 20120112, end: 20120112
  4. METOPROLOL TARTRATE [Concomitant]

REACTIONS (1)
  - PULMONARY EMBOLISM [None]
